FAERS Safety Report 8960885 (Version 1)
Quarter: 2012Q4

REPORT INFORMATION
  Report Type: 
  Country: ES (occurrence: ES)
  Receive Date: 20121213
  Receipt Date: 20121213
  Transmission Date: 20130627
  Serious: Yes (Hospitalization, Other)
  Sender: FDA-Public Use
  Company Number: PHHY2012ES112142

PATIENT
  Age: 73 Year
  Sex: Female

DRUGS (6)
  1. SINTROM [Suspect]
     Dosage: daily
     Route: 048
     Dates: start: 2006, end: 20110408
  2. SIMVASTATIN [Interacting]
     Indication: HYPERLIPIDAEMIA
     Dosage: 20 mg, UNK
     Route: 048
     Dates: start: 2006
  3. ENALAPRIL [Concomitant]
     Indication: ISCHAEMIC CARDIOMYOPATHY
     Dosage: 40 mg, daily
     Route: 048
     Dates: start: 2006, end: 20110408
  4. CANDESARTAN [Concomitant]
     Indication: HYPERTENSION
     Dosage: 32 mg, daily
     Route: 048
     Dates: end: 20110408
  5. OMEPRAZOLE [Concomitant]
     Indication: PROPHYLAXIS
     Dosage: 20 mg, daily
     Route: 048
  6. SEGURIL [Concomitant]
     Indication: CARDIAC FAILURE
     Dosage: 80 mg, daily
     Route: 048

REACTIONS (9)
  - Subarachnoid haemorrhage [Recovered/Resolved]
  - Cerebral haematoma [Recovered/Resolved]
  - Extensor plantar response [Unknown]
  - Headache [Unknown]
  - Agnosia [Unknown]
  - Drug interaction [Unknown]
  - Blood pressure increased [Unknown]
  - Blood creatinine increased [Unknown]
  - Haematocrit decreased [Unknown]
